FAERS Safety Report 10173935 (Version 1)
Quarter: 2014Q2

REPORT INFORMATION
  Report Type: Spontaneous
  Country: FR (occurrence: FR)
  Receive Date: 20140515
  Receipt Date: 20140515
  Transmission Date: 20141212
  Serious: Yes (Hospitalization)
  Sender: FDA-Public Use
  Company Number: FR-VERTEX PHARMACEUTICALS INC-2014-002313

PATIENT
  Age: 65 Year
  Sex: Female

DRUGS (4)
  1. INCIVO [Suspect]
     Indication: HEPATITIS C
     Dosage: 750 MG, TID
     Route: 048
     Dates: start: 20130218, end: 20130323
  2. PEGASYS [Suspect]
     Indication: HEPATITIS C
     Dosage: 180 ?G, QW
     Route: 058
     Dates: start: 20130221, end: 20130316
  3. COPEGUS [Suspect]
     Indication: HEPATITIS C
     Dosage: 1000 MG, QD
     Route: 048
     Dates: start: 20130121, end: 20130323
  4. PREVISCAN (FLUINDIONE) [Suspect]
     Indication: THROMBOSIS
     Dosage: UNK
     Route: 065

REACTIONS (3)
  - Hyperthermia [Recovered/Resolved]
  - Infection [Unknown]
  - Anaemia [Unknown]
